FAERS Safety Report 16627904 (Version 1)
Quarter: 2019Q3

REPORT INFORMATION
  Report Type: Spontaneous
  Country: US (occurrence: US)
  Receive Date: 20190724
  Receipt Date: 20190724
  Transmission Date: 20191004
  Serious: Yes (Other)
  Sender: FDA-Public Use
  Company Number: US-JNJFOC-20190717448

PATIENT
  Sex: Male

DRUGS (1)
  1. DARZALEX [Suspect]
     Active Substance: DARATUMUMAB
     Indication: PRODUCT USED FOR UNKNOWN INDICATION
     Route: 042

REACTIONS (5)
  - Rhinorrhoea [Recovered/Resolved]
  - Eye swelling [Recovered/Resolved]
  - Vascular device infection [Unknown]
  - Lacrimation increased [Recovered/Resolved]
  - Infusion related reaction [Recovered/Resolved]
